FAERS Safety Report 15327161 (Version 1)
Quarter: 2018Q3

REPORT INFORMATION
  Report Type: Spontaneous
  Country: GB (occurrence: GB)
  Receive Date: 20180828
  Receipt Date: 20180828
  Transmission Date: 20181010
  Serious: Yes (Death, Congenital Anomaly)
  Sender: FDA-Public Use
  Company Number: GB-TEVA-2018-GB-947270

PATIENT
  Sex: Female
  Weight: 1.12 kg

DRUGS (3)
  1. PREGNACARE ORIGINAL [Concomitant]
     Route: 064
  2. NAPROXEN. [Suspect]
     Active Substance: NAPROXEN
     Indication: NECK PAIN
     Route: 064
     Dates: start: 20170106, end: 20170114
  3. PARACETAMOL [Concomitant]
     Active Substance: ACETAMINOPHEN
     Dosage: AT THE END OF THE PREGNANCY
     Route: 064

REACTIONS (7)
  - Congenital foot malformation [Fatal]
  - Ventricular septal defect [Fatal]
  - Micrognathia [Fatal]
  - Caudal regression syndrome [Fatal]
  - Cleft lip [Fatal]
  - Foetal exposure during pregnancy [Fatal]
  - Congenital pulmonary valve atresia [Fatal]
